FAERS Safety Report 22001854 (Version 1)
Quarter: 2023Q1

REPORT INFORMATION
  Report Type: Report from Study
  Country: US (occurrence: US)
  Receive Date: 20230216
  Receipt Date: 20230216
  Transmission Date: 20230417
  Serious: Yes (Other)
  Sender: FDA-Public Use
  Company Number: US-BIOGEN-2023BI01187404

PATIENT
  Sex: Male

DRUGS (1)
  1. TYSABRI [Suspect]
     Active Substance: NATALIZUMAB
     Indication: Multiple sclerosis
     Route: 050
     Dates: start: 20160324, end: 20191008

REACTIONS (6)
  - Seizure [Unknown]
  - Hypotonia [Unknown]
  - Skin abrasion [Unknown]
  - Contusion [Unknown]
  - Impaired healing [Unknown]
  - Skin laceration [Unknown]
